FAERS Safety Report 19466940 (Version 3)
Quarter: 2021Q3

REPORT INFORMATION
  Report Type: Spontaneous
  Country: GR (occurrence: GR)
  Receive Date: 20210628
  Receipt Date: 20210820
  Transmission Date: 20211014
  Serious: Yes (Other)
  Sender: FDA-Public Use
  Company Number: GR-NOVOPROD-822869

PATIENT
  Age: 46 Year
  Sex: Female

DRUGS (4)
  1. FIASP [Suspect]
     Active Substance: INSULIN ASPART
     Dosage: 2 IU
     Route: 058
     Dates: start: 20210616
  2. FIASP [Suspect]
     Active Substance: INSULIN ASPART
     Indication: TYPE 1 DIABETES MELLITUS
     Dosage: DEPENDING ON THE MEAL
     Route: 058
     Dates: start: 20210615
  3. TOUJEO [Concomitant]
     Active Substance: INSULIN GLARGINE
     Indication: TYPE 1 DIABETES MELLITUS
     Dosage: UNK
     Route: 065
  4. FIASP [Suspect]
     Active Substance: INSULIN ASPART
     Dosage: (DEPENDING ON THE MEAL)
     Route: 058

REACTIONS (7)
  - Device delivery system issue [Recovered/Resolved]
  - Product storage error [Unknown]
  - Product label confusion [Unknown]
  - Multiple use of single-use product [Unknown]
  - Hypoglycaemia [Recovered/Resolved]
  - Hyperglycaemia [Recovered/Resolved]
  - Product dose omission issue [Unknown]

NARRATIVE: CASE EVENT DATE: 20210616
